FAERS Safety Report 16826534 (Version 1)
Quarter: 2019Q3

REPORT INFORMATION
  Report Type: Spontaneous
  Country: US (occurrence: US)
  Receive Date: 20190919
  Receipt Date: 20190919
  Transmission Date: 20191005
  Serious: Yes (Death)
  Sender: FDA-Public Use
  Company Number: US-PFIZER INC-2019265399

PATIENT
  Age: 88 Year
  Sex: Male
  Weight: 78.5 kg

DRUGS (2)
  1. RETACRIT [Suspect]
     Active Substance: EPOETIN ALFA-EPBX
     Indication: CHRONIC KIDNEY DISEASE
     Dosage: 40000 IU, EVERY 14 DAYS
     Dates: start: 201904
  2. RETACRIT [Suspect]
     Active Substance: EPOETIN ALFA-EPBX
     Indication: ANAEMIA

REACTIONS (3)
  - Product dose omission [Unknown]
  - Death [Fatal]
  - Off label use [Unknown]
